FAERS Safety Report 9099478 (Version 1)
Quarter: 2013Q1

REPORT INFORMATION
  Report Type: Spontaneous
  Country: JP (occurrence: JP)
  Receive Date: 20130214
  Receipt Date: 20130214
  Transmission Date: 20140127
  Serious: Yes (Other)
  Sender: FDA-Public Use
  Company Number: JP-ASTRAZENECA-2012SE95590

PATIENT
  Age: 81 Year
  Sex: Male

DRUGS (6)
  1. NEXIUM [Suspect]
     Indication: GASTROOESOPHAGEAL REFLUX DISEASE
     Route: 048
     Dates: start: 20120924, end: 20121225
  2. CRESTOR [Interacting]
     Dosage: DOSE UNKNOWN
     Route: 048
  3. WARFARIN [Interacting]
     Dosage: DOSE UNKNOWN
     Route: 065
     Dates: end: 20121225
  4. FEBURIC [Interacting]
     Route: 048
     Dates: start: 20120924, end: 20130108
  5. TAKEPRON [Concomitant]
     Dosage: DOSE UNKNOWN
     Route: 065
     Dates: end: 20120923
  6. NORVASC [Concomitant]
     Dosage: DOSE UNKNOWN
     Route: 065

REACTIONS (2)
  - Potentiating drug interaction [Recovered/Resolved]
  - International normalised ratio increased [Not Recovered/Not Resolved]
